FAERS Safety Report 4569786-X (Version None)
Quarter: 2005Q1

REPORT INFORMATION
  Report Type: 
  Country: None (occurrence: None)
  Receive Date: 20050203
  Receipt Date: 20041022
  Transmission Date: 20050727
  Serious: Yes (Life-Threatening, Hospitalization)
  Sender: FDA-Public Use
  Company Number: DE-MERCK-0410DEU00690

PATIENT
  Age: 65 Year
  Sex: Female
  Weight: 72 kg

DRUGS (10)
  1. VIOXX [Suspect]
     Indication: OSTEOARTHRITIS
     Route: 048
     Dates: start: 19991223, end: 20020101
  2. VIOXX [Suspect]
     Route: 048
     Dates: start: 20020320, end: 20041004
  3. VIOXX [Suspect]
     Route: 048
     Dates: start: 20020101, end: 20020319
  4. VIOXX [Suspect]
     Indication: OSTEOCHONDROSIS
     Route: 048
     Dates: start: 19991223, end: 20020101
  5. VIOXX [Suspect]
     Route: 048
     Dates: start: 20020320, end: 20041004
  6. VIOXX [Suspect]
     Route: 048
     Dates: start: 20020101, end: 20020319
  7. HYZAAR [Concomitant]
     Indication: HYPERTENSION
     Route: 048
     Dates: start: 19980101
  8. PIRACETAM [Concomitant]
     Indication: DEEP BRAIN STIMULATION
     Route: 048
     Dates: start: 19960101
  9. FLUPIRTINE MALEATE [Concomitant]
     Indication: MYALGIA
     Route: 048
     Dates: start: 20000301
  10. INDOMETHACIN [Concomitant]
     Route: 065
     Dates: start: 19990101, end: 20011201

REACTIONS (43)
  - ALOPECIA [None]
  - ANGINA PECTORIS [None]
  - ANXIETY [None]
  - ARRHYTHMIA [None]
  - BALANCE DISORDER [None]
  - BLADDER PAIN [None]
  - CARDIAC DISORDER [None]
  - CARDIAC FAILURE [None]
  - COUGH [None]
  - CYSTITIS [None]
  - CYSTITIS NONINFECTIVE [None]
  - DERMATITIS [None]
  - DERMATITIS ALLERGIC [None]
  - DIZZINESS [None]
  - DUODENAL ULCER [None]
  - DYSPEPSIA [None]
  - FAECAL INCONTINENCE [None]
  - FALL [None]
  - GASTRIC DISORDER [None]
  - GASTRIC HAEMORRHAGE [None]
  - GASTRIC ULCER [None]
  - GASTRITIS [None]
  - HAEMATURIA [None]
  - HEADACHE [None]
  - HELICOBACTER GASTRITIS [None]
  - HYPERKERATOSIS [None]
  - HYPERTENSION [None]
  - HYPERTONIC BLADDER [None]
  - INTESTINAL POLYP [None]
  - IRRITABLE BOWEL SYNDROME [None]
  - KNEE DEFORMITY [None]
  - LIGAMENT SPRAIN [None]
  - OSTEOARTHRITIS [None]
  - PAIN [None]
  - PAIN IN EXTREMITY [None]
  - PALPITATIONS [None]
  - REFLUX OESOPHAGITIS [None]
  - RENAL PAIN [None]
  - SLEEP DISORDER [None]
  - TINEA PEDIS [None]
  - TINNITUS [None]
  - URINARY INCONTINENCE [None]
  - VENTRICULAR FIBRILLATION [None]
